FAERS Safety Report 8177177-8 (Version None)
Quarter: 2012Q1

REPORT INFORMATION
  Report Type: 
  Country: None (occurrence: None)
  Receive Date: 20120301
  Receipt Date: 20120220
  Transmission Date: 20120608
  Serious: Yes (Other)
  Sender: FDA-Public Use
  Company Number: US-BAYER-2011-064112

PATIENT
  Age: 38 Year
  Sex: Female
  Weight: 56.689 kg

DRUGS (7)
  1. YAZ [Suspect]
     Indication: DYSMENORRHOEA
  2. YASMIN [Suspect]
     Indication: PREMENSTRUAL SYNDROME
  3. YAZ [Suspect]
     Indication: PREMENSTRUAL SYNDROME
  4. YASMIN [Suspect]
     Indication: ENDOMETRIOSIS
     Dosage: UNK
     Dates: start: 20050101, end: 20090701
  5. PREDNISONE [Concomitant]
     Indication: PHLEBITIS
     Dosage: UNK
     Dates: start: 20090706
  6. YASMIN [Suspect]
     Indication: DYSMENORRHOEA
  7. YAZ [Suspect]
     Indication: ENDOMETRIOSIS
     Dosage: UNK
     Dates: start: 20050101, end: 20090701

REACTIONS (10)
  - EMOTIONAL DISTRESS [None]
  - ANXIETY [None]
  - PSYCHOLOGICAL TRAUMA [None]
  - PARAESTHESIA [None]
  - OEDEMA PERIPHERAL [None]
  - FEAR [None]
  - PAIN IN EXTREMITY [None]
  - CHEST PAIN [None]
  - DEEP VEIN THROMBOSIS [None]
  - INJURY [None]
